FAERS Safety Report 5326101-1 (Version None)
Quarter: 2007Q2

REPORT INFORMATION
  Report Type: 
  Country: None (occurrence: None)
  Receive Date: 20070516
  Receipt Date: 20070508
  Transmission Date: 20071010
  Serious: Yes (Hospitalization)
  Sender: FDA-Public Use
  Company Number: JP-BRISTOL-MYERS SQUIBB COMPANY-13764964

PATIENT
  Age: 10 Year
  Sex: Female
  Weight: 31 kg

DRUGS (5)
  1. ENDOXAN [Suspect]
     Indication: LYMPHOMA
     Route: 041
     Dates: start: 20061205, end: 20061207
  2. METHOTREXATE [Suspect]
     Indication: LYMPHOMA
     Route: 041
     Dates: start: 20061204, end: 20061204
  3. ONCOVIN [Suspect]
     Indication: LYMPHOMA
     Route: 042
     Dates: start: 20061205, end: 20061205
  4. PREDONINE [Suspect]
     Indication: LYMPHOMA
     Route: 048
     Dates: start: 20061204, end: 20061208
  5. THERARUBICIN [Suspect]
     Route: 041
     Dates: start: 20061206, end: 20061207

REACTIONS (4)
  - CONSTIPATION [None]
  - INFECTION [None]
  - STOMATITIS [None]
  - WHITE BLOOD CELL COUNT DECREASED [None]
